FAERS Safety Report 11268918 (Version 1)
Quarter: 2015Q3

REPORT INFORMATION
  Report Type: Spontaneous
  Country: US (occurrence: None)
  Receive Date: 20150710
  Receipt Date: 20150710
  Transmission Date: 20151125
  Serious: No
  Sender: FDA-Public Use
  Company Number: BR15-179-AE-PATIENT #2

PATIENT
  Age: 31 Year
  Sex: Female

DRUGS (2)
  1. BUPRENORPHINE HCL AND NALOXONE HCL [Suspect]
     Active Substance: BUPRENORPHINE\NALOXONE
  2. OXYCODONE [Suspect]
     Active Substance: OXYCODONE

REACTIONS (3)
  - Drug abuse [None]
  - Homicide [None]
  - Intentional product misuse [None]

NARRATIVE: CASE EVENT DATE: 20141019
